FAERS Safety Report 25956351 (Version 1)
Quarter: 2025Q4

REPORT INFORMATION
  Report Type: Spontaneous
  Country: US (occurrence: US)
  Receive Date: 20251024
  Receipt Date: 20251024
  Transmission Date: 20260117
  Serious: No
  Sender: APOTEX
  Company Number: US-APOTEX-2025AP031344

PATIENT
  Age: 80 Year
  Sex: Female

DRUGS (2)
  1. OLANZAPINE [Suspect]
     Active Substance: OLANZAPINE
     Indication: Selective eating disorder
     Dosage: 2.5 MILLIGRAM (BEFORE MEALS)
     Route: 048
  2. LORAZEPAM [Suspect]
     Active Substance: LORAZEPAM
     Indication: Selective eating disorder
     Dosage: 0.25 MILLIGRAM
     Route: 042

REACTIONS (2)
  - Sedation [Unknown]
  - Drug ineffective [Unknown]
